FAERS Safety Report 19601795 (Version 2)
Quarter: 2021Q4

REPORT INFORMATION
  Report Type: Report from Study
  Country: US (occurrence: US)
  Receive Date: 20210723
  Receipt Date: 20211005
  Transmission Date: 20220304
  Serious: No
  Sender: FDA-Public Use
  Company Number: NVSC2021US155605

PATIENT
  Sex: Male

DRUGS (1)
  1. COSENTYX [Suspect]
     Active Substance: SECUKINUMAB
     Indication: Psoriasis
     Dosage: UNK
     Route: 065
     Dates: start: 202010

REACTIONS (6)
  - Skin lesion [Unknown]
  - Injection site reaction [Unknown]
  - Injection site pain [Unknown]
  - Drug ineffective [Unknown]
  - Influenza [Unknown]
  - Thyroid mass [Unknown]
